FAERS Safety Report 22017112 (Version 1)
Quarter: 2023Q1

REPORT INFORMATION
  Report Type: Report from Study
  Country: US (occurrence: US)
  Receive Date: 20230221
  Receipt Date: 20230221
  Transmission Date: 20230418
  Serious: No
  Sender: FDA-Public Use
  Company Number: US-HRARD-2021000819

PATIENT
  Age: 65 Year
  Sex: Male

DRUGS (2)
  1. LYSODREN [Suspect]
     Active Substance: MITOTANE
     Indication: Malignant melanoma
     Dosage: 2000 MG BID
     Route: 048
     Dates: start: 20210324
  2. LYSODREN [Suspect]
     Active Substance: MITOTANE
     Indication: Malignant melanoma
     Dosage: 05 TABLETS TWICE DAILY
     Route: 048
     Dates: end: 20220907

REACTIONS (3)
  - Nausea [Unknown]
  - Fatigue [Unknown]
  - Off label use [Recovered/Resolved]

NARRATIVE: CASE EVENT DATE: 20210101
